FAERS Safety Report 9188468 (Version 2)
Quarter: 2013Q2

REPORT INFORMATION
  Report Type: Spontaneous
  Country: US (occurrence: US)
  Receive Date: 20130325
  Receipt Date: 20130501
  Transmission Date: 20140414
  Serious: Yes (Other)
  Sender: FDA-Public Use
  Company Number: US-TEVA-393283USA

PATIENT
  Sex: Female

DRUGS (1)
  1. COPAXONE [Suspect]
     Indication: MULTIPLE SCLEROSIS
     Dates: start: 20070820

REACTIONS (6)
  - Progressive multiple sclerosis [Unknown]
  - Gait disturbance [Unknown]
  - Hypoaesthesia [Unknown]
  - Pain [Unknown]
  - Paraesthesia [Unknown]
  - Feeling abnormal [Unknown]
